FAERS Safety Report 9517531 (Version 1)
Quarter: 2013Q3

REPORT INFORMATION
  Report Type: Report from Study
  Country: US (occurrence: US)
  Receive Date: 20130911
  Receipt Date: 20130911
  Transmission Date: 20140515
  Serious: Yes (Hospitalization)
  Sender: FDA-Public Use
  Company Number: US-ABBOTT-13P-163-1143232-00

PATIENT
  Age: 73 Year
  Sex: Male
  Weight: 79.45 kg

DRUGS (10)
  1. HUMIRA [Suspect]
     Indication: PSORIATIC ARTHROPATHY
     Dates: start: 2011, end: 201303
  2. LOPRESSOR [Suspect]
     Indication: BLOOD PRESSURE ABNORMAL
  3. COZAAR [Suspect]
     Indication: BLOOD PRESSURE ABNORMAL
     Dates: end: 201308
  4. OXYCONTIN [Suspect]
     Indication: APPENDICITIS PERFORATED
  5. METHOTREXATE [Concomitant]
     Indication: PSORIATIC ARTHROPATHY
     Dates: start: 201306
  6. SYNTHROID [Concomitant]
     Indication: HYPOTHYROIDISM
  7. PRILOSEC [Concomitant]
     Indication: BARRETT^S OESOPHAGUS
  8. FOLIC ACID [Concomitant]
     Indication: PRODUCT USED FOR UNKNOWN INDICATION
  9. CRESTOR [Concomitant]
     Indication: BLOOD CHOLESTEROL ABNORMAL
  10. VITRON C [Concomitant]
     Indication: VITAMIN SUPPLEMENTATION

REACTIONS (13)
  - Appendicitis perforated [Recovered/Resolved]
  - Abdominal pain [Recovered/Resolved]
  - Pyrexia [Recovered/Resolved]
  - Vomiting [Recovered/Resolved]
  - Abscess intestinal [Recovered/Resolved]
  - Confusional state [Recovered/Resolved]
  - Sepsis [Recovered/Resolved]
  - Loss of consciousness [Recovered/Resolved]
  - Arthralgia [Not Recovered/Not Resolved]
  - Weight decreased [Not Recovered/Not Resolved]
  - Macrocytosis [Not Recovered/Not Resolved]
  - Psoriasis [Not Recovered/Not Resolved]
  - Hypotension [Recovered/Resolved]
